FAERS Safety Report 22780053 (Version 2)
Quarter: 2024Q4

REPORT INFORMATION
  Report Type: Spontaneous
  Country: CA (occurrence: CA)
  Receive Date: 20230803
  Receipt Date: 20241216
  Transmission Date: 20250115
  Serious: Yes (Other)
  Sender: ROCHE
  Company Number: CA-ROCHE-3397914

PATIENT
  Age: 57 Year
  Sex: Female

DRUGS (13)
  1. RITUXIMAB [Suspect]
     Active Substance: RITUXIMAB
     Indication: Rheumatoid arthritis
     Route: 042
  2. ACETAMINOPHEN [Concomitant]
     Active Substance: ACETAMINOPHEN
     Route: 048
  3. ALENDRONATE SODIUM [Concomitant]
     Active Substance: ALENDRONATE SODIUM
  4. CELEBREX [Concomitant]
     Active Substance: CELECOXIB
  5. DIPHENHYDRAMINE [Concomitant]
     Active Substance: DIPHENHYDRAMINE
     Route: 042
  6. DIPHENHYDRAMINE HYDROCHLORIDE [Concomitant]
     Active Substance: DIPHENHYDRAMINE HYDROCHLORIDE
     Route: 048
  7. DOXYCYCLINE [Concomitant]
     Active Substance: DOXYCYCLINE
  8. METHYLPREDNISOLONE [Concomitant]
     Active Substance: METHYLPREDNISOLONE
     Route: 042
  9. METHYLPREDNISOLONE [Concomitant]
     Active Substance: METHYLPREDNISOLONE
     Route: 048
  10. METOPROLOL [Concomitant]
     Active Substance: METOPROLOL
  11. PREDNISONE [Concomitant]
     Active Substance: PREDNISONE
  12. SYNTHROID [Concomitant]
     Active Substance: LEVOTHYROXINE SODIUM
     Route: 065
  13. TRAMADOL [Concomitant]
     Active Substance: TRAMADOL

REACTIONS (6)
  - COVID-19 [Recovered/Resolved]
  - Lower respiratory tract infection [Recovered/Resolved]
  - Nasal congestion [Recovered/Resolved]
  - Pneumonia [Recovered/Resolved]
  - Incorrect drug administration rate [Unknown]
  - Wrong product administered [Unknown]
